FAERS Safety Report 19041927 (Version 2)
Quarter: 2021Q1

REPORT INFORMATION
  Report Type: Spontaneous
  Country: NL (occurrence: NL)
  Receive Date: 20210323
  Receipt Date: 20210329
  Transmission Date: 20210420
  Serious: Yes (Death, Other)
  Sender: FDA-Public Use
  Company Number: NL-SA-2021SA096222

PATIENT
  Age: 45 Year
  Sex: Male
  Weight: 61.6 kg

DRUGS (25)
  1. NEUPOGEN [Concomitant]
     Active Substance: FILGRASTIM
     Dosage: 1 DF (ON DIALYSIS)
  2. NADROPARINE [Concomitant]
     Active Substance: NADROPARIN
     Dosage: 1 DF (ON DIALYSIS)
  3. OMEPRAZOLE. [Concomitant]
     Active Substance: OMEPRAZOLE
     Dosage: 40 MG, Q12H (1 TABLET TWICE A DAY)
  4. LACTULOSE. [Concomitant]
     Active Substance: LACTULOSE
     Dosage: 30 ML, Q12H (2 DAILY DOSES 30 ML)
  5. MOVICOLON [Concomitant]
     Active Substance: POLYETHYLENE GLYCOL 3350\POTASSIUM CHLORIDE\SODIUM BICARBONATE\SODIUM CHLORIDE
     Dosage: 1 DF, BID (1 TABLET TWICE A DAY)
  6. ZOFRAN [Concomitant]
     Active Substance: ONDANSETRON HYDROCHLORIDE
     Dosage: 4 MG, Q12H (1 TABLET TWICE A DAY)
  7. MULTIVITAMINUM [Concomitant]
     Active Substance: VITAMINS
     Dosage: 1 DF, QD (1 TABLET ONCE A DAY)
  8. ARANESP [Concomitant]
     Active Substance: DARBEPOETIN ALFA
  9. VERAPAMIL [Concomitant]
     Active Substance: VERAPAMIL HYDROCHLORIDE
     Dosage: 120 MG, QD (1D120MG)
  10. BISACODYL. [Concomitant]
     Active Substance: BISACODYL
     Dosage: 5 MG (1 TABLET ONCE DAY, IF NEEDED)
  11. PRIMPERAN [Concomitant]
     Active Substance: METOCLOPRAMIDE HYDROCHLORIDE
     Dosage: 10 MG, Q8H (3 DAILY DOSES 10 MG)
  12. RENAGEL [Suspect]
     Active Substance: SEVELAMER HYDROCHLORIDE
     Indication: HYPERPHOSPHATAEMIA
     Dosage: 1 DF (VARYING)
     Dates: start: 2011
  13. RENVELA [Concomitant]
     Active Substance: SEVELAMER CARBONATE
     Dosage: 2.4 G, Q8H (2.4G 3D)
  14. NATRIUM [DICLOFENAC SODIUM] [Concomitant]
     Dosage: 25 MG, Q8H (25 MG 3 DAILY)
  15. FLUTICASONE PROPIONATE. [Concomitant]
     Active Substance: FLUTICASONE PROPIONATE
     Dosage: 100 UG, QD (2 TABLET ONCE A DAY)
  16. CREON [Concomitant]
     Active Substance: PANCRELIPASE AMYLASE\PANCRELIPASE LIPASE\PANCRELIPASE PROTEASE
     Dosage: 150 MG, Q8H (3 DAILY DOSES 150 MG)
  17. LIDOCAINE/PRILOCAINE [Concomitant]
     Active Substance: LIDOCAINE\PRILOCAINE
     Dosage: 1 DF (ON SHUNT SPOT)
  18. LORAZEPAM. [Concomitant]
     Active Substance: LORAZEPAM
     Dosage: 1 DF (ON DIALYSIS)
  19. CINACALCET HYDROCHLORIDE. [Concomitant]
     Active Substance: CINACALCET HYDROCHLORIDE
     Dosage: 60 MG, QD (1 TABLET ONCE A DAY)
  20. DURATEARS [DEXTRAN 70;HYPROMELLOSE] [Concomitant]
     Dosage: 1 GTT DROPS, BID (1 TABLET TWICE DAILY ODS)
  21. SORBISTERIT [CALCIUM POLYSTYRENE SULFONATE] [Suspect]
     Active Substance: CALCIUM POLYSTYRENE SULFONATE
     Indication: PRODUCT USED FOR UNKNOWN INDICATION
     Dosage: NOT ON DIALYSIS DAYS
  22. PANTRIOZYME [Concomitant]
     Dosage: 25000 IU, Q8H (3D2 25.000IE)
  23. PARACETAMOL [Concomitant]
     Active Substance: ACETAMINOPHEN
     Dosage: 1 DF (ON DIALYSIS)
  24. ALFACALCIDOL [Concomitant]
     Active Substance: ALFACALCIDOL
     Dosage: 0.25 UG, QD (1 TABLET ONCE A DAY)
  25. FERINJECT [Concomitant]
     Active Substance: FERRIC CARBOXYMALTOSE
     Dosage: 1 DF (DURING DIALYSIS)

REACTIONS (3)
  - Colitis [Unknown]
  - Crystal deposit intestine [Unknown]
  - Intestinal ischaemia [Fatal]

NARRATIVE: CASE EVENT DATE: 20210217
